FAERS Safety Report 18672513 (Version 6)
Quarter: 2021Q4

REPORT INFORMATION
  Report Type: Report from Study
  Country: JP (occurrence: JP)
  Receive Date: 20201228
  Receipt Date: 20211211
  Transmission Date: 20220303
  Serious: Yes (Life-Threatening, Hospitalization)
  Sender: FDA-Public Use
  Company Number: JP-JNJFOC-A-CH2019-196366

PATIENT
  Age: 22 Year
  Sex: Female

DRUGS (20)
  1. EPOPROSTENOL [Suspect]
     Active Substance: EPOPROSTENOL
     Indication: Pulmonary arterial hypertension
     Dosage: 24 NG/KG/MIN
     Route: 041
     Dates: start: 20161106
  2. EPOPROSTENOL [Suspect]
     Active Substance: EPOPROSTENOL
     Dosage: 17.13 NG/KG/MIN
     Route: 041
     Dates: start: 20161129
  3. EPOPROSTENOL [Suspect]
     Active Substance: EPOPROSTENOL
     Dosage: 19.1NG/KG/MIN
     Route: 041
     Dates: start: 20161129, end: 20170322
  4. EPOPROSTENOL [Suspect]
     Active Substance: EPOPROSTENOL
     Dosage: 21.4NG/KG/MIN
     Route: 041
     Dates: start: 20170322
  5. EPOPROSTENOL [Suspect]
     Active Substance: EPOPROSTENOL
     Route: 041
     Dates: end: 20190226
  6. OPSUMIT [Suspect]
     Active Substance: MACITENTAN
     Indication: Pulmonary arterial hypertension
     Dosage: 10 MG, OD
     Route: 048
     Dates: start: 20160516
  7. ADCIRCA [Suspect]
     Active Substance: TADALAFIL
     Indication: Pulmonary arterial hypertension
     Route: 048
     Dates: start: 20130206
  8. FLOLAN [Suspect]
     Active Substance: EPOPROSTENOL SODIUM
     Indication: Pulmonary arterial hypertension
     Dosage: 26 NG/KG/MIN
     Route: 041
     Dates: start: 20190227
  9. FUROSEMIDE [Concomitant]
     Active Substance: FUROSEMIDE
     Indication: Right ventricular failure
     Route: 048
     Dates: start: 20061013, end: 20161228
  10. FUROSEMIDE [Concomitant]
     Active Substance: FUROSEMIDE
     Route: 048
     Dates: start: 20161228
  11. SPIRONOLACTONE [Concomitant]
     Active Substance: SPIRONOLACTONE
     Indication: Right ventricular failure
     Route: 048
     Dates: start: 20061013, end: 20161228
  12. SPIRONOLACTONE [Concomitant]
     Active Substance: SPIRONOLACTONE
     Route: 048
     Dates: start: 20161228
  13. SODIUM FERROUS CITRATE [Concomitant]
     Active Substance: SODIUM FERROUS CITRATE
     Indication: Iron deficiency anaemia
     Route: 048
     Dates: start: 20140305, end: 20190507
  14. OXYGEN [Concomitant]
     Active Substance: OXYGEN
     Route: 055
  15. XYZAL [Concomitant]
     Active Substance: LEVOCETIRIZINE DIHYDROCHLORIDE
     Indication: Rhinitis allergic
     Route: 048
     Dates: start: 20170517, end: 20170621
  16. RINDERON VG [Concomitant]
     Active Substance: BETAMETHASONE VALERATE\GENTAMICIN SULFATE
     Indication: Prophylaxis
     Route: 061
     Dates: start: 20170614, end: 20170621
  17. METHIMAZOLE [Concomitant]
     Active Substance: METHIMAZOLE
     Indication: Hyperthyroidism
     Route: 048
     Dates: start: 20170621
  18. METHIMAZOLE [Concomitant]
     Active Substance: METHIMAZOLE
     Route: 048
  19. UNSPECIFIED INGREDIENT [Concomitant]
     Active Substance: UNSPECIFIED INGREDIENT
     Indication: Palpitations
     Route: 065
  20. DIETARY SUPPLEMENT\PROBIOTICS [Concomitant]
     Active Substance: DIETARY SUPPLEMENT\PROBIOTICS
     Route: 048
     Dates: start: 20180908, end: 20181010

REACTIONS (7)
  - Device occlusion [Recovered/Resolved]
  - Catheter site infection [Recovered/Resolved]
  - Pericoronitis [Recovered/Resolved]
  - Palpitations [Recovered/Resolved]
  - Pharyngeal haemorrhage [Recovered/Resolved]
  - Haemoptysis [Recovered/Resolved]
  - Rhinitis allergic [Recovered/Resolved]

NARRATIVE: CASE EVENT DATE: 20161228
